FAERS Safety Report 12421821 (Version 1)
Quarter: 2016Q2

REPORT INFORMATION
  Report Type: Spontaneous
  Country: US (occurrence: US)
  Receive Date: 20160531
  Receipt Date: 20160531
  Transmission Date: 20160815
  Serious: No
  Sender: FDA-Public Use
  Company Number: US-MDT-ADR-2016-00505

PATIENT

DRUGS (3)
  1. AMPYRA [Suspect]
     Active Substance: DALFAMPRIDINE
     Dosage: 10 MG TWICE PER DAY (BID)
     Route: 048
     Dates: start: 20141010, end: 20150408
  2. AMPYRA [Suspect]
     Active Substance: DALFAMPRIDINE
     Dosage: 10 MG ONCE DAILY AT 8:00 AM
     Route: 048
     Dates: start: 20150408
  3. BACLOFEN. [Suspect]
     Active Substance: BACLOFEN
     Dates: end: 20151209

REACTIONS (3)
  - Insomnia [Recovered/Resolved]
  - Nausea [Unknown]
  - Dizziness [Recovered/Resolved]
